FAERS Safety Report 15607572 (Version 1)
Quarter: 2018Q4

REPORT INFORMATION
  Report Type: Spontaneous
  Country: US (occurrence: US)
  Receive Date: 20181111
  Receipt Date: 20181111
  Transmission Date: 20190205
  Serious: No
  Sender: FDA-Public Use
  Company Number: None

PATIENT
  Age: 4 Month
  Sex: Female
  Weight: 86.64 kg

DRUGS (1)
  1. PARAGARD T 380A [Suspect]
     Active Substance: COPPER

REACTIONS (6)
  - Panic attack [None]
  - Altered pitch perception [None]
  - Depression [None]
  - Feeling abnormal [None]
  - Irritability [None]
  - Anxiety [None]

NARRATIVE: CASE EVENT DATE: 20181001
